FAERS Safety Report 18986764 (Version 2)
Quarter: 2021Q1

REPORT INFORMATION
  Report Type: Spontaneous
  Country: NL (occurrence: NL)
  Receive Date: 20210309
  Receipt Date: 20210321
  Transmission Date: 20210420
  Serious: Yes (Disabling)
  Sender: FDA-Public Use
  Company Number: NL-TEVA-2021-NL-1887383

PATIENT
  Sex: Male
  Weight: 112 kg

DRUGS (1)
  1. OFLOXACINE TABLET FO 400MG / BRAND NAME NOT SPECIFIED [Suspect]
     Active Substance: OFLOXACIN
     Indication: EPIDIDYMITIS
     Dosage: 800 MILLIGRAM DAILY; THERAPY END DATE : ASKED BUT UNKNOWN
     Route: 065
     Dates: start: 201809

REACTIONS (6)
  - Myalgia [Recovering/Resolving]
  - Tendon pain [Recovering/Resolving]
  - Panic reaction [Not Recovered/Not Resolved]
  - Gastritis [Recovered/Resolved]
  - Malaise [Unknown]
  - Arthralgia [Recovering/Resolving]
